FAERS Safety Report 7235516-6 (Version None)
Quarter: 2011Q1

REPORT INFORMATION
  Report Type: 
  Country: None (occurrence: None)
  Receive Date: 20110120
  Receipt Date: 20110107
  Transmission Date: 20110831
  Serious: Yes (Death)
  Sender: FDA-Public Use
  Company Number: FR-ELI_LILLY_AND_COMPANY-FR201101002664

PATIENT
  Age: 57 Year
  Sex: Male
  Weight: 63 kg

DRUGS (7)
  1. NEULASTA [Concomitant]
     Dosage: 6 MG, DAILY (1/D)
     Route: 058
     Dates: start: 20050910
  2. CISPLATIN [Concomitant]
     Dates: start: 20050616
  3. GEMCITABINE HCL [Suspect]
     Dosage: UNK, UNKNOWN
     Dates: start: 20050616
  4. EPOETIN BETA [Concomitant]
     Dates: start: 20050803
  5. PACLITAXEL [Concomitant]
     Dates: start: 20050803
  6. GRANOCYTE [Concomitant]
     Dates: start: 20050630
  7. PEMETREXED [Suspect]
     Dosage: 850 MG, UNKNOWN
     Route: 042
     Dates: start: 20050909

REACTIONS (1)
  - FEBRILE NEUTROPENIA [None]
